FAERS Safety Report 12480461 (Version 1)
Quarter: 2016Q2

REPORT INFORMATION
  Report Type: Spontaneous
  Country: US (occurrence: US)
  Receive Date: 20160620
  Receipt Date: 20160620
  Transmission Date: 20160815
  Serious: Yes (Other)
  Sender: FDA-Public Use
  Company Number: US-BAUSCH-BL-2015-029872

PATIENT
  Age: 79 Year
  Sex: Male

DRUGS (2)
  1. PROVENGE [Suspect]
     Active Substance: SIPULEUCEL-T
     Route: 042
     Dates: start: 20151203, end: 20151203
  2. PROVENGE [Suspect]
     Active Substance: SIPULEUCEL-T
     Indication: PROSTATE CANCER
     Route: 042
     Dates: start: 20151105, end: 20151105

REACTIONS (4)
  - Chills [Unknown]
  - Pyrexia [Recovered/Resolved]
  - Hypertension [Unknown]
  - Mental status changes [Unknown]

NARRATIVE: CASE EVENT DATE: 20151103
